FAERS Safety Report 9974925 (Version 1)
Quarter: 2014Q1

REPORT INFORMATION
  Report Type: Report from Study
  Country: US (occurrence: US)
  Receive Date: 20140306
  Receipt Date: 20140306
  Transmission Date: 20141002
  Serious: No
  Sender: FDA-Public Use
  Company Number: US-ABBVIE-13P-163-1157836-00

PATIENT
  Age: 54 Year
  Sex: Female
  Weight: 93.07 kg

DRUGS (5)
  1. HUMIRA [Suspect]
     Indication: PSORIASIS
     Dates: start: 20130726
  2. LEVOTHYROXINE [Concomitant]
     Indication: THYROIDECTOMY
  3. CYMBALTA [Concomitant]
     Indication: ANXIETY
  4. CYMBALTA [Concomitant]
     Indication: DEPRESSION
  5. PANTOPRAZOLE [Concomitant]
     Indication: GASTROOESOPHAGEAL REFLUX DISEASE

REACTIONS (2)
  - Injection site erythema [Not Recovered/Not Resolved]
  - Injection site swelling [Not Recovered/Not Resolved]
